FAERS Safety Report 6939420-X (Version None)
Quarter: 2010Q3

REPORT INFORMATION
  Report Type: 
  Country: None (occurrence: None)
  Receive Date: 20100819
  Receipt Date: 20100810
  Transmission Date: 20110219
  Serious: Yes (Death)
  Sender: FDA-Public Use
  Company Number: 010686

PATIENT
  Age: 63 Year
  Sex: Male

DRUGS (1)
  1. CILOSTAZOL [Suspect]
     Indication: ISCHAEMIC STROKE

REACTIONS (3)
  - CEREBRAL HAEMORRHAGE [None]
  - HEMIPARESIS [None]
  - NO THERAPEUTIC RESPONSE [None]
